FAERS Safety Report 19454269 (Version 4)
Quarter: 2022Q4

REPORT INFORMATION
  Report Type: Spontaneous
  Country: US (occurrence: US)
  Receive Date: 20210623
  Receipt Date: 20221212
  Transmission Date: 20230113
  Serious: Yes (Hospitalization)
  Sender: FDA-Public Use
  Company Number: US-TEVA-2021-US-1924506

PATIENT
  Age: 61 Year
  Sex: Male

DRUGS (11)
  1. FILGRASTIM [Suspect]
     Active Substance: FILGRASTIM
     Indication: Neutropenia
     Route: 065
  2. PANCRELIPASE [Suspect]
     Active Substance: PANCRELIPASE
     Indication: Steatorrhoea
     Dosage: TOTAL 5000 UNITS DAILY
     Route: 065
  3. ASPIRIN [Concomitant]
     Active Substance: ASPIRIN
     Indication: Product used for unknown indication
     Route: 065
  4. ATORVASTATIN [Concomitant]
     Active Substance: ATORVASTATIN
     Indication: Product used for unknown indication
     Route: 065
  5. ENALAPRIL [Concomitant]
     Active Substance: ENALAPRIL
     Indication: Product used for unknown indication
     Route: 065
  6. FLUOXETINE [Concomitant]
     Active Substance: FLUOXETINE HYDROCHLORIDE
     Indication: Product used for unknown indication
     Route: 065
  7. FLUTICASONE FUROATE\VILANTEROL TRIFENATATE [Concomitant]
     Active Substance: FLUTICASONE FUROATE\VILANTEROL TRIFENATATE
     Indication: Product used for unknown indication
     Route: 065
  8. CEFEPIME [Concomitant]
     Active Substance: CEFEPIME HYDROCHLORIDE
     Indication: Evidence based treatment
     Route: 065
  9. VANCOMYCIN [Concomitant]
     Active Substance: VANCOMYCIN
     Indication: Evidence based treatment
     Route: 065
  10. METRONIDAZOLE [Concomitant]
     Active Substance: METRONIDAZOLE
     Indication: Evidence based treatment
     Route: 065
  11. FLUCONAZOLE [Concomitant]
     Active Substance: FLUCONAZOLE
     Indication: Candida infection
     Route: 065

REACTIONS (5)
  - Neutropenia [Recovered/Resolved]
  - Therapy non-responder [Unknown]
  - Drug ineffective [Unknown]
  - Leukopenia [Recovered/Resolved]
  - Candida infection [Unknown]
